FAERS Safety Report 8982989 (Version 1)
Quarter: 2012Q4

REPORT INFORMATION
  Report Type: Report from Study
  Country: GB (occurrence: GB)
  Receive Date: 20121224
  Receipt Date: 20121224
  Transmission Date: 20130627
  Serious: Yes (Hospitalization)
  Sender: FDA-Public Use
  Company Number: GB-BRISTOL-MYERS SQUIBB COMPANY-17226853

PATIENT
  Age: 52 Year
  Sex: Male
  Weight: 92.9 kg

DRUGS (9)
  1. IPILIMUMAB [Suspect]
     Indication: METASTATIC MALIGNANT MELANOMA
     Dates: start: 20120727
  2. VEMURAFENIB [Suspect]
     Indication: MALIGNANT MELANOMA
     Dosage: Last dose:25Jul12
     Route: 048
     Dates: start: 20120316
  3. COLPERMIN [Concomitant]
     Dosage: Tab
     Dates: start: 20120303
  4. METFORMIN HCL [Concomitant]
     Dates: start: 2006
  5. LISINOPRIL [Concomitant]
  6. SERETIDE [Concomitant]
     Dosage: 1DF: 2 Puff
     Dates: start: 201102
  7. SALMETEROL XINAFOATE [Concomitant]
  8. SIMVASTATIN [Concomitant]
  9. VENTOLIN [Concomitant]
     Dosage: 1DF: 1 Puff
     Dates: start: 1970

REACTIONS (1)
  - Small intestinal obstruction [Recovered/Resolved]
